FAERS Safety Report 15756434 (Version 2)
Quarter: 2019Q1

REPORT INFORMATION
  Report Type: Spontaneous
  Country: US (occurrence: US)
  Receive Date: 20181224
  Receipt Date: 20190117
  Transmission Date: 20190417
  Serious: No
  Sender: FDA-Public Use
  Company Number: US-GLAXOSMITHKLINE-US2018225284

PATIENT
  Sex: Male
  Weight: 67.12 kg

DRUGS (1)
  1. VENTOLIN HFA [Suspect]
     Active Substance: ALBUTEROL SULFATE
     Indication: PULMONARY FIBROSIS
     Dosage: 1 PUFF(S), PRN
     Route: 055
     Dates: start: 2015

REACTIONS (2)
  - Expired product administered [Unknown]
  - Drug effect decreased [Unknown]
